FAERS Safety Report 6637476-5 (Version None)
Quarter: 2010Q1

REPORT INFORMATION
  Report Type: 
  Country: None (occurrence: None)
  Receive Date: 20100316
  Receipt Date: 20100304
  Transmission Date: 20100710
  Serious: Yes (Other)
  Sender: FDA-Public Use
  Company Number: IE-BRISTOL-MYERS SQUIBB COMPANY-15014442

PATIENT
  Age: 6 Month
  Sex: Female

DRUGS (3)
  1. ATAZANAVIR [Suspect]
     Route: 064
     Dates: start: 20090410
  2. RITONAVIR [Suspect]
     Route: 064
     Dates: start: 20090410
  3. TRUVADA [Suspect]
     Dosage: 1 DF = 1TABS
     Route: 064
     Dates: start: 20090410

REACTIONS (3)
  - DRUG WITHDRAWAL SYNDROME NEONATAL [None]
  - HEPATITIS C [None]
  - HIV INFECTION [None]
